FAERS Safety Report 6188897-9 (Version None)
Quarter: 2009Q2

REPORT INFORMATION
  Report Type: 
  Country: None (occurrence: None)
  Receive Date: 20090513
  Receipt Date: 20090506
  Transmission Date: 20091009
  Serious: Yes (Other)
  Sender: FDA-Public Use
  Company Number: PHEH2009US04542

PATIENT
  Sex: Female

DRUGS (1)
  1. DIOVAN [Suspect]
     Dosage: 80 MG, UNK
     Dates: start: 19990101

REACTIONS (3)
  - HERPES ZOSTER [None]
  - THYROID DISORDER [None]
  - WEIGHT INCREASED [None]
